FAERS Safety Report 10067447 (Version 2)
Quarter: 2014Q2

REPORT INFORMATION
  Report Type: Spontaneous
  Country: IT (occurrence: None)
  Receive Date: 20140407
  Receipt Date: 20140421
  Transmission Date: 20141212
  Serious: Yes (Hospitalization)
  Sender: FDA-Public Use
  Company Number: 2264889

PATIENT
  Age: 68 Year
  Sex: Female

DRUGS (5)
  1. MEROPENEM [Suspect]
     Indication: PNEUMOCOCCAL SEPSIS
     Dosage: 6 G GRAMS, INTRAVENOUS, (NOT OTHERWISE SPECIFIED)
     Route: 042
     Dates: start: 20140314, end: 20140317
  2. VANCOMYCIN [Suspect]
     Indication: PNEUMOCOCCAL SEPSIS
     Dosage: 2 G GRAMS, INTRAVENOUS, (NOT OTHERWISE SPECIFIED)
     Route: 042
     Dates: start: 20140223, end: 20140317
  3. PANTOPRAZOLE [Concomitant]
  4. KCL [Concomitant]
  5. COMBISARTAN [Concomitant]

REACTIONS (3)
  - Erythrodermic psoriasis [None]
  - Drug reaction with eosinophilia and systemic symptoms [None]
  - Therapy responder [None]
